FAERS Safety Report 9604170 (Version 1)
Quarter: 2013Q4

REPORT INFORMATION
  Report Type: Spontaneous
  Country: US (occurrence: US)
  Receive Date: 20131008
  Receipt Date: 20131008
  Transmission Date: 20140711
  Serious: Yes (Other)
  Sender: FDA-Public Use
  Company Number: US-BRISTOL-MYERS SQUIBB COMPANY-19412071

PATIENT
  Sex: Female

DRUGS (3)
  1. ABILIFY [Suspect]
     Route: 048
  2. EFFEXOR [Interacting]
  3. EFFEXOR XR [Interacting]

REACTIONS (2)
  - Lung adenocarcinoma [Unknown]
  - Drug interaction [Unknown]
